FAERS Safety Report 9665756 (Version 2)
Quarter: 2014Q1

REPORT INFORMATION
  Report Type: Spontaneous
  Country: US (occurrence: US)
  Receive Date: 20131104
  Receipt Date: 20140130
  Transmission Date: 20141002
  Serious: Yes (Hospitalization)
  Sender: FDA-Public Use
  Company Number: US-BAYER-2013-133287

PATIENT
  Age: 44 Year
  Sex: Female

DRUGS (4)
  1. ESSURE [Suspect]
     Dosage: UNK
     Dates: start: 2010
  2. LOESTRIN [Suspect]
     Indication: CONTRACEPTION
     Dosage: UNK
     Dates: end: 201205
  3. MIRENA [Suspect]
     Indication: CONTRACEPTION
     Dosage: 20 ?G/D, CONT
     Route: 015
  4. NEXIUM [Concomitant]
     Indication: DYSPEPSIA

REACTIONS (16)
  - Thrombosis [Recovering/Resolving]
  - Pain [Recovering/Resolving]
  - Pain in extremity [Recovering/Resolving]
  - Local swelling [Recovering/Resolving]
  - Erythema [Recovering/Resolving]
  - Feeling hot [Recovering/Resolving]
  - Pulmonary embolism [Unknown]
  - Dyspnoea exertional [Unknown]
  - Constipation [None]
  - Flatulence [None]
  - Abdominal pain [None]
  - Back pain [None]
  - Pelvic pain [None]
  - Feeling abnormal [Recovering/Resolving]
  - Vulvovaginal pain [Unknown]
  - Menorrhagia [Unknown]
